FAERS Safety Report 6993968-0 (Version None)
Quarter: 2010Q3

REPORT INFORMATION
  Report Type: 
  Country: None (occurrence: None)
  Receive Date: 20100917
  Receipt Date: 20070605
  Transmission Date: 20110219
  Serious: Yes (Hospitalization)
  Sender: FDA-Public Use
  Company Number: US-ASTRAZENECA-2006UW23894

PATIENT
  Age: 39 Year
  Sex: Male
  Weight: 68 kg

DRUGS (9)
  1. SEROQUEL [Suspect]
     Indication: BIPOLAR DISORDER
     Dosage: 300MG - 600 MG
     Route: 048
     Dates: start: 19990101, end: 20050101
  2. SEROQUEL [Suspect]
     Indication: POST-TRAUMATIC STRESS DISORDER
     Dosage: 300MG - 600 MG
     Route: 048
     Dates: start: 19990101, end: 20050101
  3. SEROQUEL [Suspect]
     Dosage: 100-600 MG
     Route: 048
     Dates: start: 20030101
  4. SEROQUEL [Suspect]
     Dosage: 100-600 MG
     Route: 048
     Dates: start: 20030101
  5. RISPERDAL [Concomitant]
     Dates: start: 19980101, end: 19990101
  6. ZYPREXA/SYMBYAX [Concomitant]
     Dates: start: 19980101, end: 20000101
  7. CELEXA [Concomitant]
     Dates: start: 20040101, end: 20050101
  8. TRAZODONE HCL [Concomitant]
     Dates: start: 19980101, end: 20010101
  9. WELLBUTRIN [Concomitant]
     Dosage: 75 MG QAM, 75 MG QHS
     Route: 048
     Dates: start: 20030101

REACTIONS (1)
  - PANCREATITIS [None]
